FAERS Safety Report 8454702-0 (Version None)
Quarter: 2012Q2

REPORT INFORMATION
  Report Type: 
  Country: None (occurrence: None)
  Receive Date: 20120615
  Receipt Date: 20120615
  Transmission Date: 20120825
  Serious: Yes (Other)
  Sender: FDA-Public Use
  Company Number: None

PATIENT
  Sex: Male

DRUGS (1)
  1. ENBREL [Suspect]
     Dosage: 50 MG EVERY WEEK SUBCUTANEOUSLY
     Route: 058
     Dates: start: 20110719, end: 20120612

REACTIONS (1)
  - DEPRESSION [None]
